FAERS Safety Report 8315008-3 (Version None)
Quarter: 2012Q2

REPORT INFORMATION
  Report Type: 
  Country: None (occurrence: None)
  Receive Date: 20120426
  Receipt Date: 20120305
  Transmission Date: 20120825
  Serious: No
  Sender: FDA-Public Use
  Company Number: US-MUTUAL PHARMACEUTICAL COMPANY, INC.-CLCY20120041

PATIENT
  Sex: Female
  Weight: 64.922 kg

DRUGS (3)
  1. CAPTOPRIL [Concomitant]
     Indication: HYPERTENSION
     Route: 048
  2. COLCRYS [Suspect]
     Indication: GOUT
     Route: 048
     Dates: start: 20120101, end: 20120101
  3. MECLIZINE [Concomitant]
     Indication: MENIERE'S DISEASE
     Route: 048

REACTIONS (3)
  - DECREASED APPETITE [None]
  - NAUSEA [None]
  - MUSCULAR WEAKNESS [None]
